FAERS Safety Report 6194924-5 (Version None)
Quarter: 2009Q2

REPORT INFORMATION
  Report Type: 
  Country: None (occurrence: None)
  Receive Date: 20090515
  Receipt Date: 20090515
  Transmission Date: 20091009
  Serious: No
  Sender: FDA-Public Use
  Company Number: None

PATIENT
  Sex: Female
  Weight: 69.8539 kg

DRUGS (1)
  1. IMITREX [Suspect]
     Indication: MIGRAINE
     Dosage: 100 MG AT ONSET OF MIGRAI PO
     Route: 048
     Dates: start: 20090430, end: 20090430

REACTIONS (1)
  - DRUG INEFFECTIVE [None]
